FAERS Safety Report 6287233-7 (Version None)
Quarter: 2009Q3

REPORT INFORMATION
  Report Type: 
  Country: None (occurrence: None)
  Receive Date: 20090716
  Receipt Date: 20081124
  Transmission Date: 20100115
  Serious: Yes (Other)
  Sender: FDA-Public Use
  Company Number: 2008BI031903

PATIENT
  Age: 36 Year
  Sex: Female
  Weight: 59.8748 kg

DRUGS (4)
  1. AVONEX [Suspect]
     Indication: MULTIPLE SCLEROSIS
     Dosage: 30 UG;QW;IM
     Dates: start: 20070705
  2. NEURONTIN [Concomitant]
  3. PREVACID [Concomitant]
  4. ELAVIL [Concomitant]

REACTIONS (3)
  - ANXIETY [None]
  - CONVULSION [None]
  - DEPRESSION [None]
